FAERS Safety Report 26144102 (Version 1)
Quarter: 2025Q4

REPORT INFORMATION
  Report Type: Spontaneous
  Country: US (occurrence: US)
  Receive Date: 20251211
  Receipt Date: 20251211
  Transmission Date: 20260117
  Serious: Yes (Hospitalization, Other)
  Sender: RANBAXY
  Company Number: US-SUN PHARMACEUTICAL INDUSTRIES INC-2025R1-540578

PATIENT
  Age: 57 Year
  Sex: Male

DRUGS (1)
  1. CLOZAPINE [Suspect]
     Active Substance: CLOZAPINE
     Indication: Schizoaffective disorder
     Dosage: 400 MILLIGRAM, NIGHTLY
     Route: 065

REACTIONS (9)
  - Schizophrenia [Unknown]
  - Disorientation [Unknown]
  - Muscle rigidity [Unknown]
  - Unresponsive to stimuli [Unknown]
  - Catatonia [Recovered/Resolved]
  - Withdrawal syndrome [Unknown]
  - Treatment noncompliance [Unknown]
  - Confusional state [Unknown]
  - Salivary hypersecretion [Unknown]
